FAERS Safety Report 15892575 (Version 1)
Quarter: 2019Q1

REPORT INFORMATION
  Report Type: Report from Study
  Country: US (occurrence: US)
  Receive Date: 20190130
  Receipt Date: 20190130
  Transmission Date: 20190417
  Serious: No
  Sender: FDA-Public Use
  Company Number: US-EXELIXIS-CABO-18015217

PATIENT
  Sex: Male

DRUGS (7)
  1. CABOMETYX [Suspect]
     Active Substance: CABOZANTINIB S-MALATE
     Indication: RENAL CANCER
     Dosage: 60 MG, QD (ONE HOUR BEFORE OR 2 HOURS AFTER THE FOOD)
     Route: 048
     Dates: start: 20171005
  2. LEVOTHYROXIN [Concomitant]
     Active Substance: LEVOTHYROXINE
  3. METOPROLOL SUCCINATE. [Concomitant]
     Active Substance: METOPROLOL SUCCINATE
  4. ESSIAC TONIC [Concomitant]
  5. LANTUS [Concomitant]
     Active Substance: INSULIN GLARGINE
  6. REPAGLINIDE. [Concomitant]
     Active Substance: REPAGLINIDE
  7. CABOMETYX [Suspect]
     Active Substance: CABOZANTINIB S-MALATE
     Dosage: 60 MG, QD (ONE HOUR BEFORE OR 2 HOURS AFTER THE FOOD)
     Route: 048
     Dates: start: 20180702

REACTIONS (12)
  - Skin ulcer [Unknown]
  - Hypertension [Unknown]
  - Flatulence [Unknown]
  - Diarrhoea [Unknown]
  - Stomatitis [Unknown]
  - Decreased appetite [Unknown]
  - Weight decreased [Unknown]
  - Rash [Unknown]
  - Dysphagia [Unknown]
  - Productive cough [Unknown]
  - Abdominal pain upper [Unknown]
  - Dysgeusia [Unknown]
